FAERS Safety Report 5012993-2 (Version None)
Quarter: 2006Q2

REPORT INFORMATION
  Report Type: 
  Country: None (occurrence: None)
  Receive Date: 20060525
  Receipt Date: 20060517
  Transmission Date: 20061013
  Serious: Yes (Hospitalization)
  Sender: FDA-Public Use
  Company Number: 2006065125

PATIENT
  Age: 69 Year
  Sex: Male

DRUGS (5)
  1. ALDACTONE [Suspect]
     Indication: ILL-DEFINED DISORDER
     Dosage: 25 MG EVERY DAY ORAL
     Route: 048
  2. HEPARIN SODIUM [Suspect]
     Indication: ILL-DEFINED DISORDER
     Dosage: EVERY DAY, INTRAVENOUS
     Route: 042
     Dates: start: 20060207, end: 20060210
  3. FUROSEMIDE [Suspect]
     Indication: ILL-DEFINED DISORDER
     Dosage: INTERVAL, EVERY DAY ORAL
     Route: 048
  4. RABEPRAZOLE SODIUM [Suspect]
     Indication: ILL-DEFINED DISORDER
     Dosage: 20 MG EVERY DAY ORAL
     Route: 048
  5. COVERSYL                (PERINDOPRIL) [Suspect]
     Indication: ILL-DEFINED DISORDER
     Dosage: 4 MG (EVERY DAY) ORAL
     Route: 048

REACTIONS (1)
  - HEPARIN-INDUCED THROMBOCYTOPENIA [None]
